FAERS Safety Report 5194405-1 (Version None)
Quarter: 2006Q4

REPORT INFORMATION
  Report Type: 
  Country: None (occurrence: None)
  Receive Date: 20061228
  Receipt Date: 20061219
  Transmission Date: 20070319
  Serious: Yes (Hospitalization, Other)
  Sender: FDA-Public Use
  Company Number: FR-PFIZER INC-2006155311

PATIENT
  Sex: Male

DRUGS (3)
  1. TAHOR [Suspect]
  2. CLOPIDOGREL BISULFATE [Concomitant]
  3. ACETAMINOPHEN [Concomitant]

REACTIONS (2)
  - HEPATITIS [None]
  - LUNG DISORDER [None]
